FAERS Safety Report 6757867-1 (Version None)
Quarter: 2010Q2

REPORT INFORMATION
  Report Type: 
  Country: None (occurrence: None)
  Receive Date: 20100604
  Receipt Date: 20100604
  Transmission Date: 20101027
  Serious: Yes (Life-Threatening, Hospitalization)
  Sender: FDA-Public Use
  Company Number: None

PATIENT
  Age: 42 Year
  Sex: Female
  Weight: 79.4 kg

DRUGS (1)
  1. VORICONAZOLE [Suspect]
     Indication: ASPERGILLOMA
     Dosage: 300MG 12 HOURS PO
     Route: 048
     Dates: start: 20100520, end: 20100529

REACTIONS (3)
  - HEPATITIS ACUTE [None]
  - MENTAL STATUS CHANGES [None]
  - RENAL FAILURE ACUTE [None]
